FAERS Safety Report 9271232 (Version 1)
Quarter: 2013Q2

REPORT INFORMATION
  Report Type: Report from Study
  Country: TR (occurrence: TR)
  Receive Date: 20130506
  Receipt Date: 20130506
  Transmission Date: 20140414
  Serious: Yes (Hospitalization)
  Sender: FDA-Public Use
  Company Number: TR-ROCHE-1219072

PATIENT
  Age: 40 Year
  Sex: Female

DRUGS (1)
  1. XELODA [Suspect]
     Indication: GALLBLADDER CANCER
     Route: 048
     Dates: start: 20130419, end: 20130423

REACTIONS (6)
  - Ascites [Unknown]
  - Anal haemorrhage [Recovered/Resolved]
  - Loss of consciousness [Not Recovered/Not Resolved]
  - Blindness [Not Recovered/Not Resolved]
  - Deafness [Not Recovered/Not Resolved]
  - Dysphagia [Unknown]
